FAERS Safety Report 8505715-1 (Version None)
Quarter: 2012Q3

REPORT INFORMATION
  Report Type: 
  Country: None (occurrence: None)
  Receive Date: 20120712
  Receipt Date: 20120705
  Transmission Date: 20120928
  Serious: Yes (Other)
  Sender: FDA-Public Use
  Company Number: PHEH2012US013326

PATIENT
  Sex: Female
  Weight: 64.41 kg

DRUGS (3)
  1. SHOCK THERAPY [Concomitant]
     Dosage: UNK UKN, UNK
  2. CLOZAPINE [Concomitant]
     Dosage: UNK UKN, QD
  3. DIOVAN [Suspect]
     Dosage: 80 MG, QD

REACTIONS (1)
  - DEMENTIA [None]
